FAERS Safety Report 12253326 (Version 2)
Quarter: 2016Q2

REPORT INFORMATION
  Report Type: Spontaneous
  Country: US (occurrence: US)
  Receive Date: 20160411
  Receipt Date: 20160411
  Transmission Date: 20160815
  Serious: Yes (Hospitalization)
  Sender: FDA-Public Use
  Company Number: US-009507513-1604USA002094

PATIENT
  Age: 50 Year
  Sex: Male

DRUGS (2)
  1. CUBICIN [Suspect]
     Active Substance: DAPTOMYCIN
     Indication: STAPHYLOCOCCAL INFECTION
     Dosage: 640 MG, Q24H
     Route: 042
     Dates: start: 20160402
  2. CUBICIN [Suspect]
     Active Substance: DAPTOMYCIN
     Dosage: 500 UNK, UNK
     Route: 042
     Dates: start: 20160309, end: 20160331

REACTIONS (3)
  - Wrong technique in product usage process [Unknown]
  - Adverse event [Unknown]
  - Wrong technique in product usage process [Unknown]

NARRATIVE: CASE EVENT DATE: 201603
